FAERS Safety Report 4757569-7 (Version None)
Quarter: 2005Q3

REPORT INFORMATION
  Report Type: 
  Country: None (occurrence: None)
  Receive Date: 20050831
  Receipt Date: 20050825
  Transmission Date: 20060218
  Serious: Yes (Hospitalization)
  Sender: FDA-Public Use
  Company Number: PHBS2005DK12596

PATIENT
  Sex: Male

DRUGS (6)
  1. RISPERDAL [Concomitant]
     Indication: MENTAL DISORDER
     Dosage: 1 MG/D
     Dates: start: 20050504
  2. TRUXAL [Concomitant]
     Dosage: UNK, PRN
  3. NOZINAN [Concomitant]
     Dosage: UNK, PRN
  4. SERENASE [Concomitant]
     Dosage: UNK, PRN
  5. RITALIN [Suspect]
     Indication: ATTENTION DEFICIT/HYPERACTIVITY DISORDER
     Dosage: 20 MG, BID
     Route: 048
  6. RITALIN [Suspect]
     Route: 048
     Dates: start: 20050101

REACTIONS (3)
  - DELUSION [None]
  - PSYCHOTIC DISORDER [None]
  - SUICIDAL IDEATION [None]
